FAERS Safety Report 20917850 (Version 1)
Quarter: 2022Q2

REPORT INFORMATION
  Report Type: Spontaneous
  Country: CN (occurrence: None)
  Receive Date: 20220606
  Receipt Date: 20220606
  Transmission Date: 20220721
  Serious: Yes (Other)
  Sender: FDA-Public Use
  Company Number: CN-ROCHE-3104478

PATIENT
  Age: 64 Year
  Sex: Male
  Weight: 62 kg

DRUGS (2)
  1. IRINOTECAN HYDROCHLORIDE [Suspect]
     Active Substance: IRINOTECAN HYDROCHLORIDE
     Indication: Rectal cancer
     Route: 041
     Dates: start: 20191206, end: 20191206
  2. BEVACIZUMAB [Suspect]
     Active Substance: BEVACIZUMAB
     Indication: Rectal cancer
     Route: 041
     Dates: start: 20191206, end: 20191206

REACTIONS (2)
  - Diarrhoea [Recovered/Resolved]
  - Blood pressure decreased [Recovered/Resolved]

NARRATIVE: CASE EVENT DATE: 20191208
